FAERS Safety Report 9484030 (Version 1)
Quarter: 2013Q3

REPORT INFORMATION
  Report Type: Spontaneous
  Country: CA (occurrence: CA)
  Receive Date: 20130828
  Receipt Date: 20130828
  Transmission Date: 20140515
  Serious: Yes (Hospitalization)
  Sender: FDA-Public Use
  Company Number: CA-AMGEN-KDL363728

PATIENT
  Age: 36 Year
  Sex: Female
  Weight: 79.5 kg

DRUGS (1)
  1. ENBREL [Suspect]
     Indication: ANKYLOSING SPONDYLITIS
     Dosage: 50 MG, QWK
     Route: 065
     Dates: start: 20090409

REACTIONS (2)
  - Appendicitis perforated [Not Recovered/Not Resolved]
  - Abscess [Not Recovered/Not Resolved]
